FAERS Safety Report 9630240 (Version 2)
Quarter: 2013Q4

REPORT INFORMATION
  Report Type: Report from Study
  Country: BR (occurrence: BR)
  Receive Date: 20131017
  Receipt Date: 20131017
  Transmission Date: 20140711
  Serious: Yes (Other)
  Sender: FDA-Public Use
  Company Number: BR-ABBVIE-13P-020-1127809-00

PATIENT
  Sex: Female
  Weight: 75 kg

DRUGS (5)
  1. HUMIRA [Suspect]
     Indication: RHEUMATOID ARTHRITIS
     Route: 058
     Dates: start: 2007
  2. MUVINLAX [Concomitant]
     Indication: GASTROINTESTINAL DISORDER
     Route: 048
     Dates: start: 2010
  3. UNKNOWN DRUG (FORMULA) [Concomitant]
     Indication: CONSTIPATION
     Route: 048
     Dates: start: 2010
  4. EFEXOR [Concomitant]
     Indication: PAIN
     Route: 048
  5. GABAPENTINE [Concomitant]
     Indication: PAIN
     Route: 048

REACTIONS (3)
  - Spinal disorder [Unknown]
  - Pain in extremity [Not Recovered/Not Resolved]
  - Unevaluable event [Unknown]
